FAERS Safety Report 11798411 (Version 5)
Quarter: 2016Q1

REPORT INFORMATION
  Report Type: Spontaneous
  Country: US (occurrence: US)
  Receive Date: 20151203
  Receipt Date: 20160311
  Transmission Date: 20160525
  Serious: No
  Sender: FDA-Public Use
  Company Number: US-AMGEN-USASP2015126220

PATIENT
  Age: 72 Year
  Sex: Female

DRUGS (33)
  1. ENBREL [Suspect]
     Active Substance: ETANERCEPT
     Indication: RHEUMATOID ARTHRITIS
     Dosage: UNK
     Route: 065
     Dates: start: 200509
  2. FISH OIL [Concomitant]
     Active Substance: FISH OIL
     Dosage: 1000 MG, QD
     Route: 048
  3. DORZOLAMIDE [Concomitant]
     Active Substance: DORZOLAMIDE
     Dosage: UNK UNK, BID
     Route: 047
  4. CLOPIDOGREL [Concomitant]
     Active Substance: CLOPIDOGREL BISULFATE
     Dosage: 75 MG, QD
     Route: 048
  5. VITRON-C [Concomitant]
     Dosage: UNK UNK, QD ( 125MG-65 MG TABLET)
     Route: 048
  6. METOPROLOL                         /00376902/ [Concomitant]
     Active Substance: METOPROLOL
     Dosage: 11/2, BID
     Route: 048
  7. TYLENOL [Concomitant]
     Active Substance: ACETAMINOPHEN
     Dosage: UNK
  8. LYRICA [Suspect]
     Active Substance: PREGABALIN
     Indication: PRODUCT USED FOR UNKNOWN INDICATION
     Dosage: 50 MG CAP AM 50 MG CAP PM 1 CAPS BID FOR A WEEK INCREASE BY 25 MG UNTIL 150 MG BID
     Route: 048
  9. IMURAN [Suspect]
     Active Substance: AZATHIOPRINE
     Indication: PRODUCT USED FOR UNKNOWN INDICATION
     Dosage: UNK
     Route: 065
  10. FENOFIBRATE. [Concomitant]
     Active Substance: FENOFIBRATE
     Dosage: 145 MG, QD
     Route: 048
  11. LOSARTAN. [Concomitant]
     Active Substance: LOSARTAN
     Dosage: 50 MG, QD
     Route: 048
  12. XALATAN [Suspect]
     Active Substance: LATANOPROST
     Indication: PRODUCT USED FOR UNKNOWN INDICATION
     Dosage: UNK
     Route: 065
  13. LIPITOR [Suspect]
     Active Substance: ATORVASTATIN CALCIUM
     Indication: PRODUCT USED FOR UNKNOWN INDICATION
     Dosage: 40 MG, QD
     Route: 048
  14. LISINOPRIL. [Suspect]
     Active Substance: LISINOPRIL
     Indication: PRODUCT USED FOR UNKNOWN INDICATION
     Dosage: UNK
     Route: 065
  15. METFORMIN [Concomitant]
     Active Substance: METFORMIN HYDROCHLORIDE
     Dosage: 1-2 TABLET  DAILY SUPPER AS DIRECTED
     Route: 048
  16. METHOTREXATE [Concomitant]
     Active Substance: METHOTREXATE
     Dosage: 25 MG, QWK
     Route: 048
  17. CYANOCOBALAMIN. [Concomitant]
     Active Substance: CYANOCOBALAMIN
     Dosage: 1000 MUG, QD
     Route: 048
  18. CLOBETASOL [Concomitant]
     Active Substance: CLOBETASOL
     Dosage: UNK UNK, BID (AT NIGHT DURING THE DAY ONE OTHER TIME UP TO 21/30 DAYS OF THE MONTH)
     Route: 061
  19. COENZYME Q10 [Concomitant]
     Active Substance: UBIDECARENONE
     Dosage: UNK
  20. INDOCIN [Suspect]
     Active Substance: INDOMETHACIN\INDOMETHACIN SODIUM
     Indication: PRODUCT USED FOR UNKNOWN INDICATION
     Dosage: UNK
     Route: 065
  21. ISOSORBIDE MONONITRATE. [Concomitant]
     Active Substance: ISOSORBIDE MONONITRATE
     Dosage: 30 MG, QD
     Route: 048
  22. ROPINIROLE. [Concomitant]
     Active Substance: ROPINIROLE
     Dosage: 3 MG, QD (AT BED TIME)
     Route: 048
  23. DESIPRAMINE [Concomitant]
     Active Substance: DESIPRAMINE
     Dosage: 1-TAB PO AT HS INCREASING-BY 10MG WEEKLY UP- TO 50 MG. PER PATIENT IS NOW DECREASING IS AT 20 MG
     Route: 048
  24. PANTOPRAZOLE [Concomitant]
     Active Substance: PANTOPRAZOLE SODIUM
     Dosage: 40 MG, QD
     Route: 048
  25. FOLIC ACID. [Concomitant]
     Active Substance: FOLIC ACID
     Dosage: 1 MG, QD
     Route: 048
  26. CHOLECALCIFEROL [Concomitant]
     Active Substance: CHOLECALCIFEROL
     Dosage: UNK
     Route: 048
  27. NITROSTAT [Suspect]
     Active Substance: NITROGLYCERIN
     Indication: PRODUCT USED FOR UNKNOWN INDICATION
     Dosage: 0.4 MG, EVERY 5 MINUTES AS NEEDED FOR CHEST PAIN
     Route: 060
  28. BACLOFEN. [Concomitant]
     Active Substance: BACLOFEN
     Dosage: 5 MG, TID
     Route: 048
  29. RITUXAN [Suspect]
     Active Substance: RITUXIMAB
     Indication: PRODUCT USED FOR UNKNOWN INDICATION
     Dosage: UNK
     Route: 065
  30. TEMAZEPAM. [Concomitant]
     Active Substance: TEMAZEPAM
     Dosage: 7.5 MG, QD (AT BEDTIME) AS NEEDED FOR SLEEP
     Route: 048
  31. SPIRONOLACTONE. [Concomitant]
     Active Substance: SPIRONOLACTONE
     Dosage: 0.5 MG, QD
     Route: 048
  32. CHLORTHALIDONE. [Concomitant]
     Active Substance: CHLORTHALIDONE
     Dosage: 25 MG, QD
     Route: 048
  33. ASPIRIN                            /00002701/ [Concomitant]
     Active Substance: ASPIRIN
     Dosage: 81 MG, QD
     Route: 048

REACTIONS (8)
  - Migraine [Unknown]
  - Dyspnoea [Recovered/Resolved]
  - Throat tightness [Unknown]
  - Pruritus [Recovered/Resolved]
  - Drug hypersensitivity [Unknown]
  - Peripheral swelling [Unknown]
  - Chest pain [Recovered/Resolved]
  - Eye irritation [Unknown]

NARRATIVE: CASE EVENT DATE: 2005
